FAERS Safety Report 5963322-9 (Version None)
Quarter: 2008Q4

REPORT INFORMATION
  Report Type: 
  Country: None (occurrence: None)
  Receive Date: 20081124
  Receipt Date: 20081117
  Transmission Date: 20090506
  Serious: Yes (Death, Hospitalization)
  Sender: FDA-Public Use
  Company Number: A0713323A

PATIENT
  Age: 57 Year
  Sex: Male
  Weight: 136.4 kg

DRUGS (5)
  1. AVANDIA [Suspect]
     Indication: TYPE 2 DIABETES MELLITUS
     Dosage: 4MG PER DAY
     Route: 048
     Dates: start: 20050401, end: 20060425
  2. DIABETA [Concomitant]
     Dates: start: 19980101, end: 20050101
  3. ATENOLOL [Concomitant]
  4. LISINOPRIL [Concomitant]
  5. HYDROCODONE BITARTRATE [Concomitant]

REACTIONS (12)
  - ANXIETY [None]
  - ARTERIOSCLEROSIS CORONARY ARTERY [None]
  - CORONARY ARTERY DISEASE [None]
  - DEATH [None]
  - DEFORMITY [None]
  - DEPRESSION [None]
  - DISABILITY [None]
  - EMOTIONAL DISTRESS [None]
  - INJURY [None]
  - MALIGNANT NEOPLASM PROGRESSION [None]
  - MYOCARDIAL INFARCTION [None]
  - PAIN [None]
